FAERS Safety Report 16388537 (Version 1)
Quarter: 2019Q3

REPORT INFORMATION
  Report Type: Spontaneous
  Country: US (occurrence: US)
  Receive Date: 20190601
  Receipt Date: 20190601
  Transmission Date: 20191004
  Serious: Yes (Life-Threatening, Disabling)
  Sender: FDA-Public Use
  Company Number: None

PATIENT
  Age: 64 Year
  Sex: Female
  Weight: 84.15 kg

DRUGS (1)
  1. LIOTHYRONINE 25MCG TAB MAY DRUG EXPIRATION:04/25/2020 [Suspect]
     Active Substance: LIOTHYRONINE
     Indication: HYPOTHYROIDISM
     Dosage: ?          QUANTITY:1 TABLET(S);?
     Route: 048
     Dates: start: 20190426, end: 20190506

REACTIONS (7)
  - Peripheral swelling [None]
  - Hypersomnia [None]
  - Disorientation [None]
  - Blood pressure increased [None]
  - Expired product administered [None]
  - Body temperature decreased [None]
  - Product quality issue [None]

NARRATIVE: CASE EVENT DATE: 20190520
